FAERS Safety Report 11499761 (Version 1)
Quarter: 2015Q3

REPORT INFORMATION
  Report Type: Spontaneous
  Country: US (occurrence: None)
  Receive Date: 20150910
  Receipt Date: 20150910
  Transmission Date: 20151125
  Serious: No
  Sender: FDA-Public Use
  Company Number: None

PATIENT
  Age: 75 Year
  Sex: Female
  Weight: 107.96 kg

DRUGS (21)
  1. TYLENOL [Concomitant]
     Active Substance: ACETAMINOPHEN
  2. AMLODIPINE (NORVASC) [Concomitant]
  3. FAMOTIDINE (PEPCID) [Concomitant]
  4. FENOFIBRATE MICRONIZED (LOFIBRA) [Concomitant]
  5. LASIX [Concomitant]
     Active Substance: FUROSEMIDE
  6. ANTIOX#10/OM3/DHA/EPA/LUT/ZEAX AREDS FORMULA [Concomitant]
  7. ATENOLOL (TENORMIN) [Concomitant]
  8. MULTIVITAMIN (THERAGRAN) [Concomitant]
  9. ASCORBIC ACID (ASCORBIC ACID WITH ROSE HIPS) [Concomitant]
  10. METFORMIN (GLUCOPHAGE) [Concomitant]
  11. VITAMIN A-VITAMIN D3 [Concomitant]
  12. DICLOFENAC SODIUM (VOLTAREN) [Concomitant]
  13. MAGNESIUM [Concomitant]
     Active Substance: MAGNESIUM
  14. KLOR-CON [Concomitant]
     Active Substance: POTASSIUM CHLORIDE
  15. GAVILYTE - N [Suspect]
     Active Substance: POLYETHYLENE GLYCOL 3350\POTASSIUM CHLORIDE\SODIUM BICARBONATE\SODIUM CHLORIDE
     Indication: BOWEL PREPARATION
     Dosage: UNTIL GONE 8 OZ EVERY 15 MIN. STARTED 8-5 AT 6 PM FINISHED BY ABOUT 9 PM BY MOUTH
     Route: 048
     Dates: start: 20150805, end: 20150805
  16. FLURBIPROFEN (ANSAID) [Concomitant]
  17. LISINOPRIL (PRINIVIL, ZESTRIL) [Concomitant]
  18. CARBAMAZEPINE (CARBATROL) [Concomitant]
  19. UBIDECARENONE (COENZYME Q10) [Concomitant]
  20. ASPIRIN 325 [Concomitant]
  21. LIPITOR [Concomitant]
     Active Substance: ATORVASTATIN CALCIUM

REACTIONS (3)
  - Rash erythematous [None]
  - Rash [None]
  - Pruritus [None]

NARRATIVE: CASE EVENT DATE: 20150807
